FAERS Safety Report 7215887-7 (Version None)
Quarter: 2011Q1

REPORT INFORMATION
  Report Type: 
  Country: None (occurrence: None)
  Receive Date: 20110107
  Receipt Date: 20101229
  Transmission Date: 20110831
  Serious: Yes (Other)
  Sender: FDA-Public Use
  Company Number: BR-ASTRAZENECA-2010SE61411

PATIENT
  Age: 19404 Day
  Sex: Female
  Weight: 69 kg

DRUGS (2)
  1. ATACAND [Suspect]
     Indication: HYPERTENSION
     Route: 048
     Dates: start: 20100901, end: 20101201
  2. ATACAND [Suspect]
     Route: 048
     Dates: start: 20101201

REACTIONS (2)
  - ROAD TRAFFIC ACCIDENT [None]
  - BLOOD PRESSURE INADEQUATELY CONTROLLED [None]
